FAERS Safety Report 7786944-1 (Version None)
Quarter: 2011Q3

REPORT INFORMATION
  Report Type: 
  Country: None (occurrence: None)
  Receive Date: 20110928
  Receipt Date: 20110928
  Transmission Date: 20111222
  Serious: Yes (Other)
  Sender: FDA-Public Use
  Company Number: None

PATIENT
  Age: 59 Year
  Sex: Male
  Weight: 116.8 kg

DRUGS (1)
  1. AZITHROMYCIN [Suspect]
     Indication: UPPER RESPIRATORY TRACT INFECTION
     Dosage: 250 MG OTHER PO
     Route: 048
     Dates: start: 20110425, end: 20110428

REACTIONS (6)
  - ANGIOEDEMA [None]
  - URTICARIA [None]
  - PHARYNGITIS STREPTOCOCCAL [None]
  - RASH [None]
  - SWELLING FACE [None]
  - PRURITUS [None]
